FAERS Safety Report 4319328-9 (Version None)
Quarter: 2004Q1

REPORT INFORMATION
  Report Type: 
  Country: None (occurrence: None)
  Receive Date: 20040319
  Receipt Date: 20030613
  Transmission Date: 20041129
  Serious: Yes (Hospitalization)
  Sender: FDA-Public Use
  Company Number: PHBS2003BR06224

PATIENT
  Age: 32 Year
  Sex: Female
  Weight: 55 kg

DRUGS (3)
  1. TEGRETOL [Suspect]
     Indication: CONVULSION
     Dosage: 1 TABLET, BID
     Route: 048
  2. TEGRETOL [Suspect]
     Dosage: 1 TABLET EVERY 2 DAYS
     Route: 048
     Dates: end: 20030701
  3. EUTHYROX [Concomitant]
     Indication: THYROID DISORDER
     Route: 048
     Dates: start: 19990101

REACTIONS (4)
  - ABORTION [None]
  - DRUG EXPOSURE DURING PREGNANCY [None]
  - MATERNAL DRUGS AFFECTING FOETUS [None]
  - PREGNANCY [None]
